FAERS Safety Report 7743076-6 (Version None)
Quarter: 2011Q3

REPORT INFORMATION
  Report Type: 
  Country: None (occurrence: None)
  Receive Date: 20110912
  Receipt Date: 20110830
  Transmission Date: 20111222
  Serious: Yes (Other)
  Sender: FDA-Public Use
  Company Number: HR-SANOFI-AVENTIS-2011SA056460

PATIENT
  Age: 31 Year
  Sex: Female

DRUGS (34)
  1. LEVOTHYROXINE SODIUM [Suspect]
     Route: 065
     Dates: start: 20080501
  2. BACLOFEN [Suspect]
     Dosage: DOSE: 3X10 MG
     Route: 065
     Dates: start: 20070901
  3. GABAPENTIN [Suspect]
     Dosage: DOSE: 3X300 MG
     Route: 065
     Dates: start: 20090401
  4. GINKGO BILOBA [Suspect]
     Route: 065
     Dates: start: 20100301
  5. ACETAMINOPHEN AND TRAMADOL HCL [Suspect]
     Dosage: DOSE: 3X 2 (375/325MG)
     Route: 065
     Dates: start: 20070901
  6. ESOMEPRAZOLE SODIUM [Suspect]
     Dosage: DOSE: 2X20 MG
     Route: 065
     Dates: start: 20100301
  7. FEXOFENADINE HCL [Suspect]
     Route: 065
     Dates: start: 20100301
  8. PREGABALIN [Suspect]
     Dosage: DOSE: 2X300 MG
     Route: 065
     Dates: start: 20100301
  9. LEVOTHYROXINE SODIUM [Suspect]
     Route: 065
     Dates: start: 20070301
  10. PIROXICAM [Suspect]
     Route: 065
     Dates: start: 20070901
  11. ACETAMINOPHEN AND TRAMADOL HCL [Suspect]
     Route: 065
     Dates: start: 20100301
  12. DIAZEPAM [Suspect]
     Route: 065
     Dates: start: 20070901
  13. SERTRALINE HYDROCHLORIDE [Suspect]
     Dosage: DOSE: 50 MG 1X1
     Route: 065
     Dates: start: 20090401
  14. SERTRALINE HYDROCHLORIDE [Suspect]
     Dosage: DOSE: 1X1
     Route: 065
     Dates: start: 20080501
  15. LEVOTHYROXINE SODIUM [Suspect]
     Route: 065
     Dates: start: 20070901
  16. LEVOTHYROXINE SODIUM [Suspect]
     Route: 065
     Dates: start: 20090401
  17. BACLOFEN [Suspect]
     Dosage: DOSE: 3X25 MG
     Route: 065
     Dates: start: 20090401
  18. DIAZEPAM [Suspect]
     Dosage: DOSE: 2 MG, 2 MG, 5 MG
     Route: 065
     Dates: start: 20100301
  19. BUPRENORPHINE [Suspect]
     Route: 065
     Dates: start: 20090401
  20. LEVOTHYROXINE SODIUM [Suspect]
     Route: 065
  21. BACLOFEN [Suspect]
     Dosage: DOSE: 3X25 MG
     Route: 065
     Dates: start: 20080501
  22. ACETAMINOPHEN AND TRAMADOL HCL [Suspect]
     Dosage: DOSE: 3X 2 (375/325MG)
     Route: 065
     Dates: start: 20090401
  23. OXYCODONE HCL [Suspect]
     Route: 065
     Dates: start: 20100301
  24. PANTOPRAZOLE [Suspect]
     Route: 065
     Dates: start: 20090401
  25. FENTANYL [Suspect]
     Route: 065
     Dates: start: 20100301
  26. RANITIDINE [Suspect]
     Dosage: DOSE: 2X150 MG
     Route: 065
     Dates: start: 20070901
  27. OXYCODONE HCL [Suspect]
     Dosage: DOSE: 3X10 MG
     Route: 065
     Dates: start: 20090401
  28. LEVOTHYROXINE SODIUM [Suspect]
     Route: 065
     Dates: start: 20100301
  29. IBUPROFEN [Suspect]
     Route: 065
     Dates: start: 20070301
  30. CARBAMAZEPINE [Suspect]
     Dosage: DOSE: 3X200 MG
     Route: 065
     Dates: start: 20070901
  31. BACLOFEN [Suspect]
     Dosage: DOSE: 3X25 MG
     Route: 065
     Dates: start: 20100301
  32. ACETAMINOPHEN AND TRAMADOL HCL [Suspect]
     Dosage: DOSE: 3X 2 (375/325MG)
     Route: 065
     Dates: start: 20080501
  33. ALPRAZOLAM [Suspect]
     Dosage: DOSE: 0,5 MG 3X1
     Route: 065
     Dates: start: 20080501
  34. NEUROBION FORTE [Suspect]
     Dosage: DOSE: 2X1
     Route: 065
     Dates: start: 20080501

REACTIONS (17)
  - CONDITION AGGRAVATED [None]
  - SENSORY DISTURBANCE [None]
  - ILL-DEFINED DISORDER [None]
  - OEDEMA [None]
  - QUADRIPARESIS [None]
  - ASTHENIA [None]
  - DIZZINESS [None]
  - MUSCULOSKELETAL STIFFNESS [None]
  - LOSS OF CONSCIOUSNESS [None]
  - SYNCOPE [None]
  - PAIN [None]
  - ANXIETY [None]
  - PSYCHOMOTOR SKILLS IMPAIRED [None]
  - DIPLOPIA [None]
  - FATIGUE [None]
  - DYSTHYMIC DISORDER [None]
  - HEADACHE [None]
